FAERS Safety Report 19271719 (Version 2)
Quarter: 2021Q2

REPORT INFORMATION
  Report Type: Spontaneous
  Country: US (occurrence: US)
  Receive Date: 20210519
  Receipt Date: 20210520
  Transmission Date: 20210717
  Serious: No
  Sender: FDA-Public Use
  Company Number: US-GLAXOSMITHKLINE-USCH2021029112

PATIENT
  Age: 77 Year
  Sex: Female

DRUGS (4)
  1. ADVIL LIQUI?GELS [Suspect]
     Active Substance: IBUPROFEN
     Indication: NEPHROLITHIASIS
  2. ADVIL LIQUI?GELS [Suspect]
     Active Substance: IBUPROFEN
     Indication: NEPHROLITHIASIS
  3. CENTRUM SILVER WOMEN^S 50+ [Suspect]
     Active Substance: MINERALS\VITAMINS
     Indication: VITAMIN SUPPLEMENTATION
  4. ADVIL LIQUI?GELS [Suspect]
     Active Substance: IBUPROFEN
     Indication: PAIN

REACTIONS (5)
  - Product use complaint [Unknown]
  - Product complaint [Unknown]
  - Product use in unapproved indication [Unknown]
  - Product storage error [Unknown]
  - Wrong technique in product usage process [Unknown]
